FAERS Safety Report 9253961 (Version 2)
Quarter: 2013Q2

REPORT INFORMATION
  Report Type: Spontaneous
  Country: US (occurrence: None)
  Receive Date: 20130419
  Receipt Date: 20130507
  Transmission Date: 20140414
  Serious: Yes (Disabling, Other)
  Sender: FDA-Public Use
  Company Number: 1304-447

PATIENT
  Age: 79 Year
  Sex: Male

DRUGS (2)
  1. EYLEA [Suspect]
     Indication: AGE-RELATED MACULAR DEGENERATION
     Dosage: 2 MG, 1 IN 6 WK, INTRAVITREAL
     Dates: start: 20120326
  2. VITAMINS (RETINOL) [Concomitant]

REACTIONS (2)
  - Uveitis [None]
  - Visual acuity reduced [None]
